FAERS Safety Report 6202694-7 (Version None)
Quarter: 2009Q2

REPORT INFORMATION
  Report Type: 
  Country: None (occurrence: None)
  Receive Date: 20090519
  Receipt Date: 20090507
  Transmission Date: 20091009
  Serious: Yes (Hospitalization)
  Sender: FDA-Public Use
  Company Number: 005911

PATIENT
  Age: 84 Year
  Sex: Male

DRUGS (11)
  1. PLETAL [Suspect]
     Indication: PAIN IN EXTREMITY
     Dosage: 50 MG, BID ORAL
     Route: 048
     Dates: start: 20090204, end: 20090225
  2. SINGULAIR [Concomitant]
  3. SPIRIVA [Concomitant]
  4. ENALAPRIL MALEATE [Concomitant]
  5. ALDACTONE [Concomitant]
  6. ALLOPURINOL [Concomitant]
  7. LASIX [Concomitant]
  8. ASPIRIN [Concomitant]
  9. MUCODYNE (CARBOCISTEINE) [Concomitant]
  10. MEXITIL [Concomitant]
  11. WARFARIN (WARFARIN POTASSIUM) [Concomitant]

REACTIONS (7)
  - ANOREXIA [None]
  - DEHYDRATION [None]
  - HAEMOGLOBIN DECREASED [None]
  - HYPOPHAGIA [None]
  - PYREXIA [None]
  - RENAL DISORDER [None]
  - WHITE BLOOD CELL COUNT DECREASED [None]
